FAERS Safety Report 8363002-9 (Version None)
Quarter: 2012Q2

REPORT INFORMATION
  Report Type: 
  Country: None (occurrence: None)
  Receive Date: 20120516
  Receipt Date: 20120512
  Transmission Date: 20120825
  Serious: No
  Sender: FDA-Public Use
  Company Number: US-TEVA-338019USA

PATIENT
  Sex: Female
  Weight: 56.75 kg

DRUGS (5)
  1. EXTRA STRENGTH TYLENOL [Concomitant]
     Indication: RHEUMATOID ARTHRITIS
  2. CHLOR-TRIMETON [Concomitant]
     Indication: HYPERSENSITIVITY
  3. LYRICA [Concomitant]
     Indication: RHEUMATOID ARTHRITIS
     Dosage: 450 MILLIGRAM;
     Route: 048
  4. ASPIRIN [Concomitant]
     Indication: PROPHYLAXIS
  5. PLAN B ONE-STEP [Suspect]
     Indication: POST COITAL CONTRACEPTION
     Dosage: 1.5 MILLIGRAM;
     Route: 048
     Dates: start: 20120510, end: 20120510

REACTIONS (5)
  - MALAISE [None]
  - BACK PAIN [None]
  - NAUSEA [None]
  - DIZZINESS [None]
  - VULVOVAGINAL PAIN [None]
